FAERS Safety Report 6298792-2 (Version None)
Quarter: 2009Q3

REPORT INFORMATION
  Report Type: 
  Country: None (occurrence: None)
  Receive Date: 20090806
  Receipt Date: 20070522
  Transmission Date: 20100115
  Serious: Yes (Other)
  Sender: FDA-Public Use
  Company Number: US-ASTRAZENECA-2006UW08446

PATIENT
  Age: 19734 Day
  Sex: Male
  Weight: 102.5 kg

DRUGS (35)
  1. SEROQUEL [Suspect]
     Indication: INSOMNIA
     Route: 048
     Dates: start: 20050105
  2. SEROQUEL [Suspect]
     Indication: SLEEP DISORDER
     Route: 048
     Dates: start: 20050105
  3. SEROQUEL [Suspect]
     Route: 048
     Dates: end: 20060701
  4. SEROQUEL [Suspect]
     Route: 048
     Dates: end: 20060701
  5. ZOLOFT [Concomitant]
     Dates: start: 20050126
  6. LEXAPRO [Concomitant]
     Indication: OSTEOARTHRITIS
     Dosage: 10 - 20 MG DAILY
     Route: 048
     Dates: start: 20050105
  7. LEXAPRO [Concomitant]
     Indication: MENTAL DISORDER
     Dosage: 10 - 20 MG DAILY
     Route: 048
     Dates: start: 20050105
  8. LEXAPRO [Concomitant]
     Route: 048
     Dates: start: 20050726
  9. LEXAPRO [Concomitant]
     Route: 048
     Dates: start: 20050726
  10. SYMBYAX [Concomitant]
     Dates: start: 20050126
  11. ATIVAN [Concomitant]
     Indication: MENTAL DISORDER
     Dosage: 2 - 4 MG DAILY
     Route: 048
     Dates: start: 20050105
  12. CYMBALTA [Concomitant]
     Indication: SLEEP DISORDER
     Route: 048
     Dates: start: 20050105
  13. GABAPENTIN [Concomitant]
     Dates: start: 20051129
  14. OXYCODONE [Concomitant]
     Indication: PAIN
     Dosage: 40 - 60 MG DAILY
     Route: 048
     Dates: start: 20050105
  15. LIPITOR [Concomitant]
     Indication: HYPERLIPIDAEMIA
     Dosage: 20 - 80 MG DAILY
     Route: 048
     Dates: start: 20050105
  16. LYRICA [Concomitant]
     Dates: start: 20050105
  17. HYDROCHLOROTHIAZIDE [Concomitant]
     Indication: HYPERTENSION
     Route: 048
     Dates: start: 20050105
  18. ACIPHEX [Concomitant]
     Indication: GASTRIC DISORDER
     Route: 048
     Dates: start: 20050105
  19. VERCLAN PM [Concomitant]
     Indication: HYPERTENSION
     Dates: start: 20050105
  20. DIOVAN HCT [Concomitant]
     Indication: HYPERTENSION
     Dosage: 80/12.5 MG DAILY
     Route: 048
     Dates: start: 20050105
  21. CELECOXIB [Concomitant]
     Indication: PAIN
     Route: 048
     Dates: start: 20050105
  22. TYLOX [Concomitant]
     Route: 048
     Dates: start: 20050726
  23. ASPIRIN [Concomitant]
     Route: 048
     Dates: start: 20070604
  24. PLAVIX [Concomitant]
     Route: 048
     Dates: start: 20070604
  25. XOPENEX [Concomitant]
     Dosage: 0.63 MG- 2 PUFFS BID
     Dates: start: 20070604
  26. CHANTIX [Concomitant]
     Dates: start: 20070604
  27. MICARDIS [Concomitant]
     Dosage: 80/25 ONE TAB P.O. DAILY
     Route: 048
     Dates: start: 20070604
  28. SPIRIVA [Concomitant]
     Dosage: 2 PUFS DAILY
     Dates: start: 20070604
  29. GEODON [Concomitant]
     Route: 048
     Dates: start: 20070604
  30. VERELAN PM [Concomitant]
     Route: 048
     Dates: start: 20070604
  31. TOPROL-XL [Concomitant]
     Route: 048
     Dates: start: 20070604
  32. ALPRAZOLAM [Concomitant]
     Route: 048
     Dates: start: 20070604
  33. LAMICTAL [Concomitant]
     Dosage: 100 MG , 1-1/2 TAB Q A.M. 2 TABS BID
     Route: 048
     Dates: start: 20070604
  34. AMBIEN CR [Concomitant]
     Route: 048
     Dates: start: 20070604
  35. DAYPRO [Concomitant]
     Dosage: 2 TABLETS ONCE A DAY
     Route: 048
     Dates: start: 19980911

REACTIONS (5)
  - DIABETES MELLITUS [None]
  - DIABETIC NEUROPATHY [None]
  - DIABETIC RETINOPATHY [None]
  - TARDIVE DYSKINESIA [None]
  - TYPE 2 DIABETES MELLITUS [None]
